FAERS Safety Report 25663961 (Version 3)
Quarter: 2025Q4

REPORT INFORMATION
  Report Type: Report from Study
  Country: CA (occurrence: CA)
  Receive Date: 20250811
  Receipt Date: 20251105
  Transmission Date: 20260117
  Serious: Yes (Other)
  Sender: JOHNSON AND JOHNSON
  Company Number: CA-JNJFOC-20250259626

PATIENT
  Age: 33 Year
  Sex: Female
  Weight: 76 kg

DRUGS (3)
  1. REMICADE [Suspect]
     Active Substance: INFLIXIMAB
     Indication: Colitis ulcerative
     Dosage: LOT EXPIRATION DATE: MAY-2027
     Route: 041
     Dates: start: 20100825
  2. REMICADE [Suspect]
     Active Substance: INFLIXIMAB
     Indication: Crohn^s disease
     Dosage: RECENT DOSE
     Route: 041
     Dates: start: 20250808
  3. REMICADE [Suspect]
     Active Substance: INFLIXIMAB
     Dosage: RECENT DOSE ON 08-AUG-2025
     Route: 041

REACTIONS (8)
  - Subchorionic haematoma [Recovered/Resolved]
  - Omphalitis [Recovered/Resolved]
  - Exposure during pregnancy [Unknown]
  - Staphylococcal infection [Recovered/Resolved]
  - Urinary tract infection [Recovered/Resolved]
  - Oocyte harvest [Unknown]
  - Ear infection [Recovered/Resolved]
  - Off label use [Unknown]

NARRATIVE: CASE EVENT DATE: 20250101
